FAERS Safety Report 11517597 (Version 1)
Quarter: 2015Q3

REPORT INFORMATION
  Report Type: Spontaneous
  Country: US (occurrence: US)
  Receive Date: 20150917
  Receipt Date: 20150917
  Transmission Date: 20151125
  Serious: No
  Sender: FDA-Public Use
  Company Number: US-ACTELION PHARMACEUTICALS US, INC.-A-NJ2015-123940

PATIENT
  Age: 40 Year
  Sex: Female

DRUGS (1)
  1. OPSUMIT [Suspect]
     Active Substance: MACITENTAN
     Indication: PRODUCT USED FOR UNKNOWN INDICATION
     Dosage: 10 MG, QD
     Route: 048
     Dates: start: 20140407

REACTIONS (8)
  - Insomnia [Unknown]
  - Vomiting [Unknown]
  - Peripheral swelling [Unknown]
  - Drug dose omission [Unknown]
  - Heart rate increased [Unknown]
  - Diarrhoea [Unknown]
  - Decreased appetite [Unknown]
  - Night sweats [Unknown]
